FAERS Safety Report 19979138 (Version 1)
Quarter: 2021Q4

REPORT INFORMATION
  Report Type: Spontaneous
  Country: US (occurrence: US)
  Receive Date: 20211021
  Receipt Date: 20211021
  Transmission Date: 20220303
  Serious: Yes (Hospitalization)
  Sender: FDA-Public Use
  Company Number: None

PATIENT
  Age: 64 Year
  Sex: Female

DRUGS (1)
  1. ORENCIA [Suspect]
     Active Substance: ABATACEPT
     Indication: Rheumatoid arthritis
     Dosage: ?          OTHER FREQUENCY:EVERY WEEK;
     Route: 058
     Dates: start: 20210219

REACTIONS (2)
  - Blood disorder [None]
  - Infection [None]

NARRATIVE: CASE EVENT DATE: 20211021
